FAERS Safety Report 10112130 (Version 2)
Quarter: 2014Q2

REPORT INFORMATION
  Report Type: Report from Study
  Country: FR (occurrence: FR)
  Receive Date: 20140425
  Receipt Date: 20140616
  Transmission Date: 20141212
  Serious: Yes (Hospitalization)
  Sender: FDA-Public Use
  Company Number: FR-TEVA-477845USA

PATIENT
  Age: 63 Year
  Sex: Male

DRUGS (3)
  1. BENDAMUSTINE HCL [Suspect]
     Indication: LYMPHOMA
     Route: 042
     Dates: start: 20140204, end: 20140306
  2. RITUXIMAB [Concomitant]
     Dates: start: 20140219
  3. RITUXIMAB [Concomitant]
     Dates: start: 20140305

REACTIONS (4)
  - Infection [Recovering/Resolving]
  - Diarrhoea [Recovering/Resolving]
  - Pancytopenia [Recovering/Resolving]
  - Febrile neutropenia [Recovering/Resolving]
